FAERS Safety Report 5691746-6 (Version None)
Quarter: 2008Q1

REPORT INFORMATION
  Report Type: 
  Country: None (occurrence: None)
  Receive Date: 20080331
  Receipt Date: 20080317
  Transmission Date: 20080703
  Serious: Yes (Hospitalization)
  Sender: FDA-Public Use
  Company Number: 2006BI001629

PATIENT
  Age: 51 Year
  Sex: Female
  Weight: 48.0813 kg

DRUGS (1)
  1. AVONEX [Suspect]
     Indication: MULTIPLE SCLEROSIS
     Dosage: 30 UG; QW; IM
     Route: 030
     Dates: start: 20030101

REACTIONS (4)
  - FALL [None]
  - HAEMATOMA [None]
  - INTERVERTEBRAL DISC DEGENERATION [None]
  - PROCEDURAL PAIN [None]
